FAERS Safety Report 6530523-0 (Version None)
Quarter: 2010Q1

REPORT INFORMATION
  Report Type: 
  Country: None (occurrence: None)
  Receive Date: 20100106
  Receipt Date: 20100106
  Transmission Date: 20100710
  Serious: No
  Sender: FDA-Public Use
  Company Number: None

PATIENT
  Sex: Male

DRUGS (1)
  1. ZICAM NASAL PRODUCTS [Suspect]

REACTIONS (4)
  - ANOSMIA [None]
  - DYSGEUSIA [None]
  - HYPOGEUSIA [None]
  - HYPOSMIA [None]
